FAERS Safety Report 4771559-X (Version None)
Quarter: 2005Q3

REPORT INFORMATION
  Report Type: 
  Country: None (occurrence: None)
  Receive Date: 20050914
  Receipt Date: 20050914
  Transmission Date: 20060218
  Serious: Yes (Life-Threatening, Hospitalization)
  Sender: FDA-Public Use
  Company Number: None

PATIENT
  Sex: Female
  Weight: 97.3 kg

DRUGS (2)
  1. CEFTRIAXONE [Suspect]
     Indication: MENINGITIS
     Dosage: 1 GM Q12HOURS IV
     Route: 042
     Dates: start: 20050903, end: 20050904
  2. CEFTRIAXONE [Suspect]
     Indication: PYREXIA
     Dosage: 1 GM Q12HOURS IV
     Route: 042
     Dates: start: 20050903, end: 20050904

REACTIONS (3)
  - BLOOD CREATININE INCREASED [None]
  - EOSINOPHIL COUNT INCREASED [None]
  - NEPHRITIS INTERSTITIAL [None]
